FAERS Safety Report 16404838 (Version 1)
Quarter: 2019Q2

REPORT INFORMATION
  Report Type: Spontaneous
  Country: CA (occurrence: CA)
  Receive Date: 20190607
  Receipt Date: 20190607
  Transmission Date: 20190711
  Serious: Yes (Other)
  Sender: FDA-Public Use
  Company Number: PHHY2019CA128884

PATIENT

DRUGS (1)
  1. NILOTINIB [Suspect]
     Active Substance: NILOTINIB
     Indication: CHRONIC MYELOID LEUKAEMIA
     Dosage: UNK
     Route: 065

REACTIONS (6)
  - Myocardial ischaemia [Unknown]
  - Dyspnoea [Unknown]
  - Drug resistance [Unknown]
  - Fatigue [Unknown]
  - Weight decreased [Unknown]
  - Pleural effusion [Unknown]
